FAERS Safety Report 8390321 (Version 2)
Quarter: 2013Q3

REPORT INFORMATION
  Report Type: Spontaneous
  Country: US (occurrence: US)
  Receive Date: 20120203
  Receipt Date: 20130917
  Transmission Date: 20140515
  Serious: Yes (Hospitalization, Other)
  Sender: FDA-Public Use
  Company Number: US-ROCHE-1016514

PATIENT
  Age: 32 Year
  Sex: Female
  Weight: 43.13 kg

DRUGS (1)
  1. ACCUTANE [Suspect]
     Indication: ACNE CYSTIC
     Route: 065
     Dates: start: 19940909, end: 199503

REACTIONS (4)
  - Small intestinal obstruction [Unknown]
  - Crohn^s disease [Unknown]
  - Depression [Unknown]
  - Anxiety [Unknown]
